FAERS Safety Report 10076907 (Version 1)
Quarter: 2014Q2

REPORT INFORMATION
  Report Type: Spontaneous
  Country: JP (occurrence: None)
  Receive Date: 20140410
  Receipt Date: 20140410
  Transmission Date: 20141212
  Serious: Yes (Hospitalization, Other)
  Sender: FDA-Public Use
  Company Number: 2014/021

PATIENT
  Age: 36 Year
  Sex: Female
  Weight: 24.6 kg

DRUGS (2)
  1. OLANZAPINE [Suspect]
     Indication: ANOREXIA NERVOSA
  2. PAROXETINE (NO PREF. NAME) [Concomitant]

REACTIONS (7)
  - Weight decreased [None]
  - Cachexia [None]
  - Dysthymic disorder [None]
  - Blood glucose decreased [None]
  - Nausea [None]
  - Fatigue [None]
  - Altered state of consciousness [None]
